FAERS Safety Report 21945843 (Version 3)
Quarter: 2023Q2

REPORT INFORMATION
  Report Type: Spontaneous
  Country: US (occurrence: US)
  Receive Date: 20230202
  Receipt Date: 20230414
  Transmission Date: 20230721
  Serious: No
  Sender: FDA-Public Use
  Company Number: US-SA-SAC20230201000873

PATIENT
  Age: 55 Year
  Sex: Female

DRUGS (3)
  1. DUPIXENT [Suspect]
     Active Substance: DUPILUMAB
     Indication: Swelling
     Dosage: 600 MG, 1X
     Route: 058
     Dates: start: 20230115, end: 20230115
  2. DUPIXENT [Suspect]
     Active Substance: DUPILUMAB
     Indication: Neck mass
     Dosage: 300 MG, QOW
     Route: 058
     Dates: start: 202302
  3. DUPIXENT [Suspect]
     Active Substance: DUPILUMAB
     Indication: Skin mass

REACTIONS (2)
  - Alopecia [Not Recovered/Not Resolved]
  - Product use in unapproved indication [Unknown]

NARRATIVE: CASE EVENT DATE: 20230101
